FAERS Safety Report 18262236 (Version 1)
Quarter: 2020Q3

REPORT INFORMATION
  Report Type: Spontaneous
  Country: US (occurrence: US)
  Receive Date: 20200914
  Receipt Date: 20200914
  Transmission Date: 20201103
  Serious: Yes (Hospitalization)
  Sender: FDA-Public Use
  Company Number: None

PATIENT
  Age: 40 Year
  Sex: Male
  Weight: 82.1 kg

DRUGS (3)
  1. OMEPRAZOLE. [Concomitant]
     Active Substance: OMEPRAZOLE
  2. FOLIC ACID. [Concomitant]
     Active Substance: FOLIC ACID
  3. STELARA [Suspect]
     Active Substance: USTEKINUMAB

REACTIONS (2)
  - Colitis [None]
  - Abdominal pain [None]

NARRATIVE: CASE EVENT DATE: 20190618
